FAERS Safety Report 6177428-5 (Version None)
Quarter: 2009Q2

REPORT INFORMATION
  Report Type: 
  Country: None (occurrence: None)
  Receive Date: 20090504
  Receipt Date: 20090427
  Transmission Date: 20091009
  Serious: Yes (Hospitalization, Other)
  Sender: FDA-Public Use
  Company Number: US-BAYER-200916581NA

PATIENT
  Age: 20 Year
  Sex: Female
  Weight: 63 kg

DRUGS (2)
  1. MIRENA [Suspect]
     Indication: CONTRACEPTION
     Dosage: CONTINUOUS
     Route: 015
     Dates: start: 20090217, end: 20090327
  2. VITAMIN TAB [Concomitant]

REACTIONS (8)
  - ABDOMINAL PAIN [None]
  - DIARRHOEA [None]
  - IUCD COMPLICATION [None]
  - PAINFUL DEFAECATION [None]
  - PELVIC PAIN [None]
  - PROCEDURAL PAIN [None]
  - UTERINE RUPTURE [None]
  - VOMITING [None]
